FAERS Safety Report 8833283 (Version 2)
Quarter: 2012Q4

REPORT INFORMATION
  Report Type: 
  Country: FI (occurrence: FI)
  Receive Date: 20121010
  Receipt Date: 20121018
  Transmission Date: 20130627
  Serious: Yes (Death, Other)
  Sender: FDA-Public Use
  Company Number: FI-ROCHE-1143250

PATIENT
  Age: 79 Year
  Sex: Female

DRUGS (2)
  1. ALTEPLASE [Suspect]
     Indication: ISCHAEMIC STROKE
     Dosage: from which 10% given as a bolus and the remaining 90%as a continuous infusion for 1 h
     Route: 042
     Dates: start: 20070803, end: 20070803
  2. LABETALOL [Concomitant]

REACTIONS (3)
  - Death [Fatal]
  - Cerebral haemorrhage [Unknown]
  - Brain oedema [Unknown]
